FAERS Safety Report 12373377 (Version 2)
Quarter: 2016Q2

REPORT INFORMATION
  Report Type: Report from Study
  Country: US (occurrence: US)
  Receive Date: 20160516
  Receipt Date: 20160524
  Transmission Date: 20160815
  Serious: Yes (Hospitalization, Other)
  Sender: FDA-Public Use
  Company Number: US-EXELIXIS-CABO-16006075

PATIENT
  Sex: Female

DRUGS (2)
  1. COMETRIQ [Suspect]
     Active Substance: CABOZANTINIB S-MALATE
     Dosage: 20 MG QD, 40 MG NEXT, ALTERNATING
     Route: 048
     Dates: start: 201601, end: 201605
  2. COMETRIQ [Suspect]
     Active Substance: CABOZANTINIB S-MALATE
     Indication: RENAL CANCER
     Dosage: 60 MG, QD
     Route: 048
     Dates: start: 20151210, end: 201512

REACTIONS (8)
  - Seizure [Unknown]
  - Cerebrovascular accident [Unknown]
  - Fatigue [Unknown]
  - Diarrhoea [Unknown]
  - Off label use [Unknown]
  - Gastric ulcer [Unknown]
  - Haemorrhage [Unknown]
  - Dizziness [Unknown]
